FAERS Safety Report 7676128-X (Version None)
Quarter: 2011Q3

REPORT INFORMATION
  Report Type: 
  Country: None (occurrence: None)
  Receive Date: 20110811
  Receipt Date: 20110801
  Transmission Date: 20111222
  Serious: Yes (Hospitalization)
  Sender: FDA-Public Use
  Company Number: US-JNJFOC-20100102349

PATIENT
  Sex: Female
  Weight: 48.1 kg

DRUGS (7)
  1. INFLIXIMAB [Suspect]
     Indication: ANORECTAL DISORDER
     Route: 042
     Dates: start: 20091214
  2. CIPROFLOXACIN HCL [Concomitant]
  3. METRONIDAZOLE [Concomitant]
  4. MESALAMINE [Concomitant]
  5. INFLIXIMAB [Suspect]
     Route: 042
     Dates: start: 20091103
  6. INFLIXIMAB [Suspect]
     Indication: CROHN'S DISEASE
     Route: 042
     Dates: start: 20091214
  7. INFLIXIMAB [Suspect]
     Route: 042
     Dates: start: 20091103

REACTIONS (2)
  - PERIRECTAL ABSCESS [None]
  - CELLULITIS [None]
